FAERS Safety Report 10171359 (Version 1)
Quarter: 2014Q2

REPORT INFORMATION
  Report Type: Spontaneous
  Country: US (occurrence: None)
  Receive Date: 20140428
  Receipt Date: 20140428
  Transmission Date: 20141212
  Serious: Yes (Other)
  Sender: FDA-Public Use
  Company Number: 2523595-2014-00125

PATIENT
  Sex: 0

DRUGS (1)
  1. UVADEX [Suspect]
     Dosage: 3 PLUS

REACTIONS (1)
  - Skin irritation [None]
